FAERS Safety Report 7774313-X (Version None)
Quarter: 2011Q3

REPORT INFORMATION
  Report Type: 
  Country: None (occurrence: None)
  Receive Date: 20110923
  Receipt Date: 20110915
  Transmission Date: 20111222
  Serious: Yes (Other)
  Sender: FDA-Public Use
  Company Number: US-AMGEN-USASP2011047485

PATIENT
  Age: 60 Year
  Sex: Female

DRUGS (2)
  1. ENBREL [Suspect]
     Indication: PSORIASIS
  2. ENBREL [Suspect]
     Indication: RHEUMATOID ARTHRITIS
     Dosage: 50 MG, 2 TIMES/WK
     Dates: start: 20070709, end: 20110904

REACTIONS (7)
  - DIZZINESS [None]
  - CHEST DISCOMFORT [None]
  - TUBERCULIN TEST POSITIVE [None]
  - PSORIASIS [None]
  - ABDOMINAL PAIN UPPER [None]
  - HEADACHE [None]
  - COLONIC POLYP [None]
